FAERS Safety Report 11755732 (Version 1)
Quarter: 2015Q4

REPORT INFORMATION
  Report Type: Spontaneous
  Country: US (occurrence: None)
  Receive Date: 20151118
  Receipt Date: 20151118
  Transmission Date: 20160304
  Serious: Yes (Other)
  Sender: FDA-Public Use
  Company Number: None

PATIENT
  Age: 37 Year
  Sex: Female
  Weight: 68.04 kg

DRUGS (2)
  1. DAILY MULTI-VITAMIN [Concomitant]
     Active Substance: VITAMINS
  2. KIRKLAND SIGNATURE ALLER TEC ALLERGY [Suspect]
     Active Substance: CETIRIZINE HYDROCHLORIDE
     Indication: SEASONAL ALLERGY
     Dates: start: 20141001, end: 20151001

REACTIONS (2)
  - Pruritus generalised [None]
  - Withdrawal syndrome [None]

NARRATIVE: CASE EVENT DATE: 20151014
